FAERS Safety Report 6309834-X (Version None)
Quarter: 2009Q3

REPORT INFORMATION
  Report Type: 
  Country: None (occurrence: None)
  Receive Date: 20090814
  Receipt Date: 20090803
  Transmission Date: 20100115
  Serious: Yes (Other)
  Sender: FDA-Public Use
  Company Number: FR-PFIZER INC-2009192167

PATIENT
  Age: 53 Year

DRUGS (1)
  1. RELPAX [Suspect]
     Indication: MIGRAINE
     Dosage: UNK
     Dates: end: 20090301

REACTIONS (3)
  - ASPARTATE AMINOTRANSFERASE INCREASED [None]
  - LEUKOCYTOSIS [None]
  - POLYCYTHAEMIA [None]
